FAERS Safety Report 8150352-4 (Version None)
Quarter: 2012Q1

REPORT INFORMATION
  Report Type: 
  Country: None (occurrence: None)
  Receive Date: 20120220
  Receipt Date: 20120216
  Transmission Date: 20120608
  Serious: Yes (Other)
  Sender: FDA-Public Use
  Company Number: US-PFIZER INC-2012042690

PATIENT
  Sex: Male

DRUGS (2)
  1. CELEBREX [Suspect]
     Indication: ARTHRITIS
     Dosage: 200 MG, 2X/DAY
     Route: 048
     Dates: start: 20020101
  2. CELEBREX [Suspect]

REACTIONS (5)
  - GASTROOESOPHAGEAL REFLUX DISEASE [None]
  - DRUG INEFFECTIVE [None]
  - ABDOMINAL PAIN UPPER [None]
  - CHOKING [None]
  - CHEST PAIN [None]
